FAERS Safety Report 7001844-2 (Version None)
Quarter: 2010Q3

REPORT INFORMATION
  Report Type: 
  Country: None (occurrence: None)
  Receive Date: 20100920
  Receipt Date: 20091207
  Transmission Date: 20110219
  Serious: Yes (Other)
  Sender: FDA-Public Use
  Company Number: US-ASTRAZENECA-2009SE33260

PATIENT
  Age: 14 Year
  Sex: Female

DRUGS (9)
  1. SEROQUEL [Suspect]
     Indication: MAJOR DEPRESSION
     Route: 048
  2. SEROQUEL [Suspect]
     Indication: SCHIZOAFFECTIVE DISORDER
     Route: 048
  3. SEROQUEL [Suspect]
     Indication: OBESITY
     Route: 048
  4. SEROQUEL [Suspect]
     Indication: ALCOHOL ABUSE
     Route: 048
  5. SEROQUEL [Suspect]
     Indication: SUBSTANCE ABUSE
     Route: 048
  6. OLANZAPINE [Concomitant]
     Route: 065
  7. GLUCOPHAGE [Concomitant]
     Dates: start: 20001201
  8. INSULINE [Concomitant]
     Dates: start: 20040901
  9. RISPERIDONE [Concomitant]

REACTIONS (3)
  - INTENTIONAL OVERDOSE [None]
  - SUICIDE ATTEMPT [None]
  - TYPE 1 DIABETES MELLITUS [None]
